FAERS Safety Report 5316373-1 (Version None)
Quarter: 2007Q2

REPORT INFORMATION
  Report Type: 
  Country: None (occurrence: None)
  Receive Date: 20070430
  Receipt Date: 20070418
  Transmission Date: 20071010
  Serious: Yes (Other)
  Sender: FDA-Public Use
  Company Number: 2007SP003911

PATIENT
  Age: 44 Year
  Sex: Female
  Weight: 85.7298 kg

DRUGS (4)
  1. ALBUTEROL [Suspect]
     Indication: ASTHMA
     Dosage: 2 DF; Q6H; PO
     Route: 048
  2. PREDNISONE (PREV.) [Concomitant]
  3. DUO-MEDIHALER (PREV.) [Concomitant]
  4. OXYGEN (CON.) [Concomitant]

REACTIONS (6)
  - BONE DISORDER [None]
  - DIFFUSE ALVEOLAR DAMAGE [None]
  - FALL [None]
  - FRACTURE [None]
  - LUNG DISORDER [None]
  - PNEUMONIA [None]
